FAERS Safety Report 7055617-5 (Version None)
Quarter: 2010Q4

REPORT INFORMATION
  Report Type: 
  Country: None (occurrence: None)
  Receive Date: 20101021
  Receipt Date: 20101018
  Transmission Date: 20110411
  Serious: Yes (Other)
  Sender: FDA-Public Use
  Company Number: FR-BRISTOL-MYERS SQUIBB COMPANY-15134570

PATIENT
  Age: 43 Year
  Sex: Female
  Weight: 90 kg

DRUGS (4)
  1. APROVEL [Suspect]
     Indication: HYPERTENSION
     Route: 048
     Dates: end: 20100527
  2. LOXEN [Suspect]
     Indication: HYPERTENSION
     Route: 048
     Dates: start: 20100527
  3. MIFEPRISTONE [Suspect]
     Indication: ORAL CONTRACEPTION
     Route: 048
     Dates: end: 20100527
  4. INSULATARD [Suspect]
     Indication: GESTATIONAL DIABETES
     Route: 042
     Dates: start: 20100719

REACTIONS (4)
  - CAESAREAN SECTION [None]
  - GESTATIONAL DIABETES [None]
  - LIVE BIRTH [None]
  - PREGNANCY [None]
